FAERS Safety Report 4424920-7 (Version None)
Quarter: 2004Q3

REPORT INFORMATION
  Report Type: 
  Country: None (occurrence: None)
  Receive Date: 20040809
  Receipt Date: 20040719
  Transmission Date: 20050211
  Serious: Yes (Hospitalization)
  Sender: FDA-Public Use
  Company Number: 6009738

PATIENT

DRUGS (7)
  1. BISOPROLOL FUMARATE [Suspect]
     Indication: CARDIAC FAILURE CONGESTIVE
     Dosage: 1,25 MG
     Route: 048
     Dates: start: 20040304
  2. ENALAPRIL MALEATE [Suspect]
     Indication: CARDIAC FAILURE CONGESTIVE
     Dosage: 20 MG
     Route: 048
     Dates: start: 20030910
  3. ASPIRIN [Concomitant]
  4. SIMVASTATIN [Concomitant]
  5. AMIODARONE HCL [Concomitant]
  6. NSAIDS [Concomitant]
  7. METFORMIN HCL [Concomitant]

REACTIONS (1)
  - CEREBROVASCULAR ACCIDENT [None]
